FAERS Safety Report 5302670-2 (Version None)
Quarter: 2007Q1

REPORT INFORMATION
  Report Type: 
  Country: None (occurrence: None)
  Receive Date: 20070201
  Receipt Date: 20061218
  Transmission Date: 20070707
  Serious: No
  Sender: FDA-Public Use
  Company Number: 2006PV027081

PATIENT
  Age: 35 Year
  Sex: Female
  Weight: 117.028 kg

DRUGS (4)
  1. BYETTA [Suspect]
     Indication: DIABETES MELLITUS NON-INSULIN-DEPENDENT
     Dosage: 5 MCG;BID;SC
     Route: 058
     Dates: start: 20061001
  2. ACTOS [Concomitant]
  3. ASACOL [Concomitant]
  4. STEROID [Concomitant]

REACTIONS (2)
  - INJECTION SITE IRRITATION [None]
  - MIGRAINE [None]
